FAERS Safety Report 7989196-2 (Version None)
Quarter: 2011Q4

REPORT INFORMATION
  Report Type: 
  Country: None (occurrence: None)
  Receive Date: 20111219
  Receipt Date: 20111212
  Transmission Date: 20120403
  Serious: Yes (Other)
  Sender: FDA-Public Use
  Company Number: US-JNJFOC-20110607316

PATIENT
  Sex: Female

DRUGS (6)
  1. VALTREX [Concomitant]
  2. CRESTOR [Concomitant]
  3. LEVAQUIN [Suspect]
     Indication: BRONCHITIS
     Route: 048
  4. LEVAQUIN [Suspect]
     Indication: BACTERIAL INFECTION
     Route: 048
  5. IBUPROFEN [Concomitant]
  6. PREDNISONE [Suspect]
     Indication: RESPIRATORY TRACT INFECTION

REACTIONS (1)
  - ROTATOR CUFF SYNDROME [None]
